FAERS Safety Report 8558545-9 (Version None)
Quarter: 2012Q3

REPORT INFORMATION
  Report Type: 
  Country: None (occurrence: None)
  Receive Date: 20120801
  Receipt Date: 20120719
  Transmission Date: 20120928
  Serious: Yes (Hospitalization)
  Sender: FDA-Public Use
  Company Number: BE-TEVA-351008ISR

PATIENT
  Sex: Male
  Weight: 76 kg

DRUGS (13)
  1. CISPLATIN [Suspect]
     Route: 042
     Dates: start: 20120621, end: 20120712
  2. TAMSULOSIN HCL [Concomitant]
     Indication: DYSURIA
     Dosage: .4 MILLIGRAM;
     Route: 048
     Dates: start: 20120615
  3. CEP-9722 [Suspect]
     Dosage: 800 MILLIGRAM;
     Route: 048
     Dates: start: 20120713, end: 20120718
  4. GEMCITABINE [Suspect]
     Route: 042
     Dates: start: 20120621, end: 20120719
  5. ETHYLMORPHINE [Concomitant]
     Indication: COUGH
     Route: 048
     Dates: start: 20120612
  6. ACETAMINOPHEN [Concomitant]
     Indication: PAIN
     Route: 048
     Dates: start: 20111201
  7. PANTOPRAZOLE [Concomitant]
     Indication: DYSPEPSIA
     Dosage: 20 MILLIGRAM;
     Route: 048
     Dates: start: 20120502, end: 20120628
  8. ETOFENAMATE GEL [Concomitant]
     Indication: BACK PAIN
     Route: 048
     Dates: start: 20120614
  9. TRAMADOL HYDROCHLORIDE [Concomitant]
     Indication: PAIN
     Route: 048
     Dates: start: 20120612
  10. DOMPERIDONE [Concomitant]
     Indication: NAUSEA
     Route: 048
     Dates: start: 20120502
  11. CIPROFLAXACIN [Concomitant]
     Indication: PROSTATITIS
     Dosage: 1000 MILLIGRAM;
     Route: 048
     Dates: start: 20120615, end: 20120708
  12. TRAMADOL HCL [Concomitant]
     Indication: PAIN
     Dosage: 200 MILLIGRAM;
     Route: 048
     Dates: start: 20120417
  13. MOVIPREP [Concomitant]
     Indication: CONSTIPATION PROPHYLAXIS
     Dosage: 2 ;
     Route: 048
     Dates: start: 20120613

REACTIONS (1)
  - PULMONARY EMBOLISM [None]
